FAERS Safety Report 16850374 (Version 2)
Quarter: 2019Q4

REPORT INFORMATION
  Report Type: Spontaneous
  Country: JP (occurrence: JP)
  Receive Date: 20190925
  Receipt Date: 20191002
  Transmission Date: 20200122
  Serious: Yes (Hospitalization, Other)
  Sender: FDA-Public Use
  Company Number: JP-JNJFOC-20190601416

PATIENT
  Age: 51 Year
  Sex: Male
  Weight: 53.1 kg

DRUGS (6)
  1. XEPLION [Suspect]
     Active Substance: PALIPERIDONE PALMITATE
     Indication: SCHIZOPHRENIA
     Route: 030
     Dates: start: 20190527, end: 20190527
  2. METFORMIN HYDROCHLORIDE. [Concomitant]
     Active Substance: METFORMIN HYDROCHLORIDE
     Indication: TYPE 2 DIABETES MELLITUS
     Route: 048
     Dates: start: 20190408
  3. LUNESTA [Concomitant]
     Active Substance: ESZOPICLONE
     Indication: INSOMNIA
     Route: 065
     Dates: start: 20190420
  4. NICOTINAMIDE [Concomitant]
     Active Substance: NIACINAMIDE
     Indication: HYPOVITAMINOSIS
     Route: 048
     Dates: start: 20190508
  5. ALINAMIN F [Concomitant]
     Active Substance: FURSULTIAMINE HYDROCHLORIDE
     Indication: HYPOVITAMINOSIS
     Route: 048
     Dates: start: 20190508
  6. MAGNESIUM OXIDE. [Concomitant]
     Active Substance: MAGNESIUM OXIDE
     Indication: HYPOVITAMINOSIS
     Route: 048
     Dates: start: 20190510

REACTIONS (6)
  - Chills [Unknown]
  - Drug-induced liver injury [Recovered/Resolved]
  - Oedema peripheral [Recovering/Resolving]
  - Myalgia [Unknown]
  - Hyperthermia [Recovering/Resolving]
  - Malaise [Unknown]

NARRATIVE: CASE EVENT DATE: 2019
